FAERS Safety Report 7241331-X (Version None)
Quarter: 2011Q1

REPORT INFORMATION
  Report Type: 
  Country: None (occurrence: None)
  Receive Date: 20110120
  Receipt Date: 20110120
  Transmission Date: 20110831
  Serious: Yes (Death)
  Sender: FDA-Public Use
  Company Number: None

PATIENT
  Age: 53 Year
  Sex: Male
  Weight: 81.6475 kg

DRUGS (2)
  1. SIMVASTATIN [Suspect]
     Indication: CHEST PAIN
     Dosage: 40MG DAILY PO
     Route: 048
     Dates: start: 20090818, end: 20091128
  2. ASPIRIN [Concomitant]

REACTIONS (2)
  - PSYCHOTIC BEHAVIOUR [None]
  - COMPLETED SUICIDE [None]
